FAERS Safety Report 8393285-0 (Version None)
Quarter: 2012Q2

REPORT INFORMATION
  Report Type: 
  Country: None (occurrence: None)
  Receive Date: 20120529
  Receipt Date: 20120517
  Transmission Date: 20120825
  Serious: Yes (Life-Threatening)
  Sender: FDA-Public Use
  Company Number: CA-COVIDIEN/TYCO HEALTHCARE/MALLINCKRODT-T201201909

PATIENT
  Age: 27 Year
  Sex: Male

DRUGS (2)
  1. FENTANYL-100 [Suspect]
     Indication: PRODUCT USED FOR UNKNOWN INDICATION
     Dosage: UNK
     Route: 062
  2. VENLAFAXINE [Suspect]
     Dosage: UNK

REACTIONS (2)
  - SEROTONIN SYNDROME [None]
  - DRUG INTERACTION [None]
